FAERS Safety Report 22153004 (Version 1)
Quarter: 2023Q1

REPORT INFORMATION
  Report Type: Other
  Country: CN (occurrence: CN)
  Receive Date: 20230329
  Receipt Date: 20230329
  Transmission Date: 20230418
  Serious: Yes (Life-Threatening)
  Sender: FDA-Public Use
  Company Number: CN-GE HEALTHCARE-2023CSU001995

PATIENT
  Age: 68 Year
  Sex: Female
  Weight: 78 kg

DRUGS (3)
  1. VISIPAQUE [Suspect]
     Active Substance: IODIXANOL
     Indication: Angiocardiogram
     Dosage: 32 GM, SINGLE
     Route: 013
     Dates: start: 20230315, end: 20230315
  2. VISIPAQUE [Suspect]
     Active Substance: IODIXANOL
     Indication: Chest pain
  3. VISIPAQUE [Suspect]
     Active Substance: IODIXANOL
     Indication: Chest discomfort

REACTIONS (5)
  - Dysphoria [Recovering/Resolving]
  - Hypotension [Recovering/Resolving]
  - Dyspnoea [Recovering/Resolving]
  - Cold sweat [Recovering/Resolving]
  - Pruritus [Recovering/Resolving]

NARRATIVE: CASE EVENT DATE: 20230315
